FAERS Safety Report 19532660 (Version 1)
Quarter: 2021Q3

REPORT INFORMATION
  Report Type: Spontaneous
  Country: US (occurrence: US)
  Receive Date: 20210713
  Receipt Date: 20210713
  Transmission Date: 20211014
  Serious: Yes (Other)
  Sender: FDA-Public Use
  Company Number: US-SYNEX-T202103012

PATIENT
  Age: 15 Year
  Sex: Male

DRUGS (6)
  1. DEXAMETHASONE. [Concomitant]
     Active Substance: DEXAMETHASONE
     Indication: ACUTE RESPIRATORY FAILURE
     Dosage: UNK
     Route: 065
  2. DEXAMETHASONE. [Concomitant]
     Active Substance: DEXAMETHASONE
     Indication: COVID-19 PNEUMONIA
  3. REMDESIVIR. [Concomitant]
     Active Substance: REMDESIVIR
     Indication: ACUTE RESPIRATORY FAILURE
     Dosage: UNK
     Route: 065
  4. INOMAX [Suspect]
     Active Substance: NITRIC OXIDE
     Indication: ACUTE RESPIRATORY FAILURE
     Dosage: UNK (INHALATION)
     Route: 055
  5. INOMAX [Suspect]
     Active Substance: NITRIC OXIDE
     Indication: COVID-19 PNEUMONIA
  6. REMDESIVIR. [Concomitant]
     Active Substance: REMDESIVIR
     Indication: COVID-19 PNEUMONIA

REACTIONS (6)
  - Product use in unapproved indication [Unknown]
  - Thrombosis [Unknown]
  - Product use issue [Unknown]
  - Pulmonary oedema [Unknown]
  - Acquired diaphragmatic eventration [Unknown]
  - Hypercoagulation [Unknown]
